FAERS Safety Report 7235653-6 (Version None)
Quarter: 2011Q1

REPORT INFORMATION
  Report Type: 
  Country: None (occurrence: None)
  Receive Date: 20110120
  Receipt Date: 20101119
  Transmission Date: 20110831
  Serious: No
  Sender: FDA-Public Use
  Company Number: US-BAYER-2010-008145

PATIENT
  Sex: Female

DRUGS (7)
  1. ICAR-C [Concomitant]
  2. SYNTHROID [Concomitant]
  3. LIPITOR [Concomitant]
  4. TENORMIN [Concomitant]
  5. ALEVE (CAPLET) [Suspect]
     Dosage: UNK
     Dates: start: 20101115, end: 20101117
  6. PREMARIN [Concomitant]
  7. DIOVAN [Concomitant]

REACTIONS (2)
  - DIARRHOEA [None]
  - ABDOMINAL PAIN UPPER [None]
